FAERS Safety Report 9052131 (Version 1)
Quarter: 2013Q1

REPORT INFORMATION
  Report Type: Spontaneous
  Country: US (occurrence: None)
  Receive Date: 20130131
  Receipt Date: 20130131
  Transmission Date: 20140127
  Serious: Yes (Life-Threatening, Other)
  Sender: FDA-Public Use
  Company Number: None

PATIENT
  Sex: Female
  Weight: 77.11 kg

DRUGS (1)
  1. PRAVASTATIN SODIUM [Suspect]
     Indication: BLOOD CHOLESTEROL INCREASED
     Dosage: YELLOW 20 G5 SEE ATTACH
     Dates: start: 20120720, end: 20121216

REACTIONS (8)
  - Product taste abnormal [None]
  - Product substitution issue [None]
  - Headache [None]
  - Nausea [None]
  - Pain [None]
  - Muscular weakness [None]
  - Local swelling [None]
  - Movement disorder [None]
